FAERS Safety Report 9539428 (Version 2)
Quarter: 2014Q1

REPORT INFORMATION
  Report Type: Spontaneous
  Country: BY (occurrence: None)
  Receive Date: 20130917
  Receipt Date: 20140122
  Transmission Date: 20141002
  Serious: Yes (Other)
  Sender: FDA-Public Use
  Company Number: CO-OR-BY-2013-056

PATIENT
  Sex: 0

DRUGS (1)
  1. PREDNISOLONE [Suspect]
     Indication: NEPHROPATHY

REACTIONS (1)
  - Diabetes mellitus [None]
